FAERS Safety Report 19230248 (Version 1)
Quarter: 2021Q2

REPORT INFORMATION
  Report Type: Report from Study
  Country: CO (occurrence: CO)
  Receive Date: 20210507
  Receipt Date: 20210507
  Transmission Date: 20210717
  Serious: Yes (Death)
  Sender: FDA-Public Use
  Company Number: CO-ASTRAZENECA-2021A399865

PATIENT
  Age: 28655 Day
  Sex: Female

DRUGS (1)
  1. OSIMERTINIB. [Suspect]
     Active Substance: OSIMERTINIB
     Indication: BRONCHIAL CARCINOMA
     Route: 048
     Dates: start: 20180620

REACTIONS (1)
  - Death [Fatal]

NARRATIVE: CASE EVENT DATE: 20210429
